FAERS Safety Report 13880585 (Version 1)
Quarter: 2017Q3

REPORT INFORMATION
  Report Type: Spontaneous
  Country: TW (occurrence: TW)
  Receive Date: 20170818
  Receipt Date: 20170818
  Transmission Date: 20171127
  Serious: Yes (Other)
  Sender: FDA-Public Use
  Company Number: TW-PFIZER INC-2017353319

PATIENT
  Age: 65 Year
  Sex: Male

DRUGS (2)
  1. OATMEAL. [Interacting]
     Active Substance: OATMEAL
     Dosage: UNK UNK, DAILY
  2. LIPITOR [Suspect]
     Active Substance: ATORVASTATIN CALCIUM
     Dosage: 10 MG, ONCE PER DAY
     Route: 048

REACTIONS (2)
  - Food interaction [Not Recovered/Not Resolved]
  - Rhabdomyolysis [Not Recovered/Not Resolved]
